FAERS Safety Report 18336477 (Version 2)
Quarter: 2021Q3

REPORT INFORMATION
  Report Type: Spontaneous
  Country: US (occurrence: US)
  Receive Date: 20201001
  Receipt Date: 20210728
  Transmission Date: 20211014
  Serious: No
  Sender: FDA-Public Use
  Company Number: US-MYLANLABS-2020M1078530

PATIENT
  Age: 3 Year
  Sex: Male

DRUGS (6)
  1. EPINEPHRINE INJECTION USP AUTO?INJECTOR [Suspect]
     Active Substance: EPINEPHRINE
     Dosage: AS NEEDED
  2. EPINEPHRINE INJECTION USP AUTO?INJECTOR [Suspect]
     Active Substance: EPINEPHRINE
     Indication: FOOD ALLERGY
     Dosage: AS NEEDED
  3. EPINEPHRINE INJECTION USP AUTO?INJECTOR [Suspect]
     Active Substance: EPINEPHRINE
     Dosage: AS NEEDED
  4. EPINEPHRINE INJECTION USP AUTO?INJECTOR [Suspect]
     Active Substance: EPINEPHRINE
     Dosage: AS NEEDED
  5. EPINEPHRINE INJECTION USP AUTO?INJECTOR [Suspect]
     Active Substance: EPINEPHRINE
     Dosage: UNK
  6. EPINEPHRINE INJECTION USP AUTO?INJECTOR [Suspect]
     Active Substance: EPINEPHRINE
     Dosage: AS NEEDED

REACTIONS (1)
  - Product quality issue [None]

NARRATIVE: CASE EVENT DATE: 20200908
